FAERS Safety Report 13903608 (Version 2)
Quarter: 2017Q3

REPORT INFORMATION
  Report Type: Spontaneous
  Country: US (occurrence: US)
  Receive Date: 20170824
  Receipt Date: 20170906
  Transmission Date: 20171127
  Serious: Yes (Death, Hospitalization, Other)
  Sender: FDA-Public Use
  Company Number: US-UNITED THERAPEUTICS-UNT-2017-012239

PATIENT
  Age: 79 Year
  Sex: Female
  Weight: 65.31 kg

DRUGS (2)
  1. SILDENAFIL CITRATE. [Concomitant]
     Active Substance: SILDENAFIL CITRATE
     Indication: PRODUCT USED FOR UNKNOWN INDICATION
  2. REMODULIN [Suspect]
     Active Substance: TREPROSTINIL
     Indication: PULMONARY HYPERTENSION
     Dosage: 0.03075 ?G/KG, CONTINUING
     Route: 058
     Dates: start: 20170424, end: 20170821

REACTIONS (15)
  - Acute myocardial infarction [Unknown]
  - Haemoptysis [Unknown]
  - Renal failure [Unknown]
  - Dyspnoea exertional [Not Recovered/Not Resolved]
  - Respiratory failure [Fatal]
  - Gram stain negative [Unknown]
  - Septic shock [Fatal]
  - Urinary tract infection [Unknown]
  - Therapy non-responder [Unknown]
  - Vomiting [Not Recovered/Not Resolved]
  - Infusion site pain [Unknown]
  - Pulmonary oedema [Unknown]
  - Diarrhoea [Not Recovered/Not Resolved]
  - Pneumonia [Fatal]
  - Memory impairment [Unknown]

NARRATIVE: CASE EVENT DATE: 2017
